FAERS Safety Report 9164393 (Version 3)
Quarter: 2013Q2

REPORT INFORMATION
  Report Type: Spontaneous
  Country: JP (occurrence: JP)
  Receive Date: 20130315
  Receipt Date: 20130503
  Transmission Date: 20140414
  Serious: Yes (Death, Hospitalization)
  Sender: FDA-Public Use
  Company Number: JP-009507513-1303JPN007121

PATIENT
  Age: 80 Year
  Sex: Female

DRUGS (2)
  1. GLACTIV [Suspect]
     Indication: TYPE 2 DIABETES MELLITUS
     Dosage: FROM SPRING TO AUTUMN OF 2011,  50 MG, QD
     Route: 048
     Dates: start: 2011, end: 2011
  2. THERAPY UNSPECIFIED [Suspect]

REACTIONS (2)
  - Pancreatic carcinoma [Fatal]
  - Pancreatitis [Fatal]
